FAERS Safety Report 7731501-6 (Version None)
Quarter: 2011Q3

REPORT INFORMATION
  Report Type: 
  Country: None (occurrence: None)
  Receive Date: 20110906
  Receipt Date: 20110607
  Transmission Date: 20111222
  Serious: No
  Sender: FDA-Public Use
  Company Number: US-AMGEN-USASP2011029382

PATIENT
  Age: 78 Year
  Sex: Female

DRUGS (8)
  1. TAPAZOLE [Concomitant]
  2. PROLIA [Suspect]
     Indication: OSTEOPOROSIS POSTMENOPAUSAL
     Dosage: 60 MG, Q6MO
     Dates: start: 20110517
  3. ASPIRIN [Concomitant]
  4. TUMS                               /00108001/ [Concomitant]
  5. VITAMIN D [Concomitant]
  6. LISINOPRIL [Concomitant]
  7. ACIPHEX [Concomitant]
  8. VYTORIN [Concomitant]

REACTIONS (4)
  - DIZZINESS [None]
  - PAIN IN EXTREMITY [None]
  - PAIN [None]
  - FEELING ABNORMAL [None]
